FAERS Safety Report 4987449-3 (Version None)
Quarter: 2006Q2

REPORT INFORMATION
  Report Type: 
  Country: None (occurrence: None)
  Receive Date: 20060424
  Receipt Date: 20060407
  Transmission Date: 20061013
  Serious: Yes (Other)
  Sender: FDA-Public Use
  Company Number: TRP_0729_2006

PATIENT
  Age: 57 Year
  Sex: Female

DRUGS (3)
  1. RIBASPHERE /RIBAVIRIN/ THREE RIVERS PHARMA/ 200 MG [Suspect]
     Indication: HEPATITIS C
     Dosage: 1000 MG QDAY PO
     Route: 048
     Dates: start: 20051118, end: 20060210
  2. PEG-INTRON [Suspect]
     Indication: HEPATITIS C
     Dosage: 80 MCG QWK SC
     Route: 058
     Dates: start: 20051118, end: 20060210
  3. ACTINAL [Concomitant]

REACTIONS (8)
  - AFFECTIVE DISORDER [None]
  - DEPRESSION [None]
  - FEELING JITTERY [None]
  - HALLUCINATION [None]
  - INSOMNIA [None]
  - MOOD SWINGS [None]
  - TACHYPHRENIA [None]
  - THERAPY NON-RESPONDER [None]
